FAERS Safety Report 10495053 (Version 1)
Quarter: 2014Q4

REPORT INFORMATION
  Report Type: Spontaneous
  Country: US (occurrence: US)
  Receive Date: 20141003
  Receipt Date: 20141003
  Transmission Date: 20150528
  Serious: No
  Sender: FDA-Public Use
  Company Number: US-MYLANLABS-2014S1014603

PATIENT
  Age: 78 Year
  Sex: Female

DRUGS (1)
  1. CLINDAMYCIN - BENZOYL PEROXIDE [Suspect]
     Active Substance: BENZOYL PEROXIDE\CLINDAMYCIN PHOSPHATE
     Indication: ACNE
     Dosage: UNK
     Route: 061
     Dates: start: 20140612, end: 20140615

REACTIONS (4)
  - Application site warmth [Not Recovered/Not Resolved]
  - Application site pruritus [Not Recovered/Not Resolved]
  - Ocular hyperaemia [Not Recovered/Not Resolved]
  - Application site erythema [Not Recovered/Not Resolved]

NARRATIVE: CASE EVENT DATE: 20140612
